FAERS Safety Report 25643704 (Version 1)
Quarter: 2025Q3

REPORT INFORMATION
  Report Type: Spontaneous
  Country: US (occurrence: None)
  Receive Date: 20250802
  Receipt Date: 20250802
  Transmission Date: 20251020
  Serious: Yes (Other)
  Sender: FDA-CTU
  Company Number: None

PATIENT
  Age: 33 Year
  Sex: Male
  Weight: 90 kg

DRUGS (2)
  1. CARVEDILOL [Suspect]
     Active Substance: CARVEDILOL
     Indication: Ventricular extrasystoles
     Dates: start: 20250604, end: 20250621
  2. Labetalol metformin [Concomitant]

REACTIONS (5)
  - Dizziness [None]
  - Blindness transient [None]
  - Diplopia [None]
  - Chest pain [None]
  - Blood urine present [None]

NARRATIVE: CASE EVENT DATE: 20250619
